FAERS Safety Report 24352520 (Version 3)
Quarter: 2024Q4

REPORT INFORMATION
  Report Type: Spontaneous
  Country: DE (occurrence: DE)
  Receive Date: 20240923
  Receipt Date: 20241007
  Transmission Date: 20250115
  Serious: Yes (Other)
  Sender: SANOFI AVENTIS
  Company Number: DE-MLMSERVICE-20240912-PI191169-00053-1

PATIENT
  Age: 52 Year
  Sex: Male

DRUGS (10)
  1. RIFAMPIN [Suspect]
     Active Substance: RIFAMPIN
     Indication: Endocarditis bacterial
     Dosage: UNK
  2. CIPROFLOXACIN [Suspect]
     Active Substance: CIPROFLOXACIN
     Indication: Endocarditis bacterial
     Dosage: UNK
  3. MEROPENEM [Suspect]
     Active Substance: MEROPENEM
     Indication: Endocarditis bacterial
     Dosage: UNK
  4. DOXYCYCLINE [Suspect]
     Active Substance: DOXYCYCLINE
     Indication: Endocarditis bacterial
     Dosage: UNK
  5. AMPICILLIN [Suspect]
     Active Substance: AMPICILLIN
     Indication: Endocarditis bacterial
     Dosage: UNK
  6. VANCOMYCIN [Suspect]
     Active Substance: VANCOMYCIN
     Indication: Endocarditis bacterial
     Dosage: UNK
  7. PENICILLIN G [Suspect]
     Active Substance: PENICILLIN G
     Indication: Endocarditis bacterial
     Dosage: UNK
  8. FLUCLOXACILLIN [Concomitant]
     Active Substance: FLUCLOXACILLIN
     Indication: Endocarditis bacterial
     Dosage: UNK
  9. DICLOFENAC [Concomitant]
     Active Substance: DICLOFENAC
     Indication: Endocarditis bacterial
     Dosage: UNK
  10. GENTAMICIN [Concomitant]
     Active Substance: GENTAMICIN
     Indication: Endocarditis bacterial
     Dosage: UNK

REACTIONS (8)
  - Multiple drug hypersensitivity [Unknown]
  - Pruritus [Unknown]
  - Dermatitis exfoliative generalised [Unknown]
  - Erythema [Unknown]
  - Skin irritation [Unknown]
  - Dermatitis bullous [Unknown]
  - Drug eruption [Unknown]
  - Type IV hypersensitivity reaction [Unknown]
